FAERS Safety Report 9235790 (Version 1)
Quarter: 2013Q2

REPORT INFORMATION
  Report Type: Spontaneous
  Country: US (occurrence: None)
  Receive Date: 20130416
  Receipt Date: 20130416
  Transmission Date: 20140414
  Serious: No
  Sender: FDA-Public Use
  Company Number: None

PATIENT
  Age: 76 Year
  Sex: Male

DRUGS (9)
  1. ASPIRIN + CAFFEINE [Suspect]
     Indication: MIGRAINE
     Route: 048
     Dates: start: 20121023, end: 20121024
  2. LOSARTAN [Suspect]
     Route: 048
  3. HYDRALAZINE [Concomitant]
  4. DIVALOPROEX [Concomitant]
  5. FERROUS SULFATE [Concomitant]
  6. HEPARIN [Concomitant]
  7. FUROSEMIDE [Concomitant]
  8. NITROSTAT [Concomitant]
  9. FAMOTIDINE PTA [Concomitant]

REACTIONS (2)
  - Angioedema [None]
  - Aphasia [None]
